FAERS Safety Report 23832143 (Version 1)
Quarter: 2024Q2

REPORT INFORMATION
  Report Type: Spontaneous
  Country: US (occurrence: US)
  Receive Date: 20240508
  Receipt Date: 20240508
  Transmission Date: 20240716
  Serious: Yes (Hospitalization, Other)
  Sender: FDA-Public Use
  Company Number: US-ELI_LILLY_AND_COMPANY-US202405002371

PATIENT
  Age: 78 Year
  Sex: Female
  Weight: 59 kg

DRUGS (2)
  1. ERBITUX [Suspect]
     Active Substance: CETUXIMAB
     Indication: Colorectal cancer metastatic
     Dosage: 500 MG/M2, 2/M (EVERY 2 WEEKS)
     Route: 042
     Dates: start: 20230922
  2. KRAZATI [Suspect]
     Active Substance: ADAGRASIB
     Indication: Colorectal cancer metastatic
     Dosage: 600 MG, DAILY
     Route: 048
     Dates: start: 20230922

REACTIONS (4)
  - General physical health deterioration [Unknown]
  - Acute kidney injury [Not Recovered/Not Resolved]
  - Dehydration [Unknown]
  - Off label use [Unknown]

NARRATIVE: CASE EVENT DATE: 20231003
